FAERS Safety Report 16634440 (Version 1)
Quarter: 2019Q3

REPORT INFORMATION
  Report Type: Other
  Country: DE (occurrence: DE)
  Receive Date: 20190726
  Receipt Date: 20190726
  Transmission Date: 20191004
  Serious: Yes (Hospitalization)
  Sender: FDA-Public Use
  Company Number: DE-LUPIN PHARMACEUTICALS INC.-2019-04525

PATIENT
  Age: 8 Year
  Sex: Female
  Weight: 34 kg

DRUGS (5)
  1. TOPIRAMATE. [Suspect]
     Active Substance: TOPIRAMATE
     Dosage: UNK (DOSE REDUCED TO 87.5-0-87 MG)
     Route: 048
  2. TOPIRAMATE. [Suspect]
     Active Substance: TOPIRAMATE
     Indication: EPILEPSY
     Dosage: UNK (87.5-0-100 MG)
     Route: 048
     Dates: start: 20190131
  3. TOPIRAMATE. [Suspect]
     Active Substance: TOPIRAMATE
     Dosage: UNK (DOSE INCREASED FROM 75-0-75 MG)
     Route: 048
     Dates: start: 20190405, end: 20190502
  4. OXCARBAZEPIN [Concomitant]
     Active Substance: OXCARBAZEPINE
     Indication: EPILEPSY
     Dosage: 900 MILLIGRAM, QD (2 SEPARATED DOSES)
     Route: 048
     Dates: start: 20110928
  5. MOVICOL JUNIOR NEUTRAL [Concomitant]
     Indication: CONSTIPATION
     Dosage: 2 DOSAGE FORM, QD (2 SEPARATED DOSES)
     Route: 048
     Dates: start: 20190222

REACTIONS (2)
  - Metabolic acidosis [Recovered/Resolved]
  - Vomiting [Recovered/Resolved]

NARRATIVE: CASE EVENT DATE: 20190502
